FAERS Safety Report 8761401 (Version 3)
Quarter: 2013Q2

REPORT INFORMATION
  Report Type: Report from Study
  Country: JP (occurrence: JP)
  Receive Date: 20120829
  Receipt Date: 20130522
  Transmission Date: 20140414
  Serious: Yes (Hospitalization)
  Sender: FDA-Public Use
  Company Number: JP-PFIZER INC-2012207519

PATIENT
  Age: 74 Year
  Sex: Male

DRUGS (12)
  1. ESTRAMUSTINE PHOSPHATE [Suspect]
     Indication: PROSTATE CANCER
     Dosage: 626.8 MG, 1X/DAY
     Route: 048
     Dates: start: 20120413, end: 20120608
  2. ESTRAMUSTINE PHOSPHATE [Suspect]
     Dosage: 313.4 MG, 1X/DAY
     Route: 048
     Dates: start: 20120608
  3. URIEF [Concomitant]
     Dosage: UNK
     Dates: start: 20120413, end: 20120615
  4. HARNAL [Concomitant]
     Dosage: UNK
     Dates: start: 20120615, end: 20120719
  5. VOLTAREN [Concomitant]
     Dosage: UNK
     Dates: start: 20120719
  6. CRAVIT [Concomitant]
     Dosage: UNK
     Dates: start: 20120608, end: 20120622
  7. PURSENNID [Concomitant]
     Dosage: UNK
     Dates: start: 20120625
  8. BRUFEN [Concomitant]
     Dosage: UNK
     Dates: start: 20120719
  9. CALBLOCK [Concomitant]
     Dosage: UNK
     Dates: start: 20120720, end: 20120828
  10. WARFARIN [Concomitant]
     Dosage: UNK
     Dates: start: 20121225
  11. FAMOTIDINE [Concomitant]
     Dosage: UNK
     Dates: start: 20121225
  12. LUPRAC [Concomitant]
     Dosage: UNK
     Dates: start: 20121227

REACTIONS (1)
  - Urinary retention [Recovering/Resolving]
